FAERS Safety Report 15183421 (Version 5)
Quarter: 2020Q4

REPORT INFORMATION
  Report Type: Spontaneous
  Country: US (occurrence: US)
  Receive Date: 20180723
  Receipt Date: 20201230
  Transmission Date: 20210113
  Serious: No
  Sender: FDA-Public Use
  Company Number: US-SA-2018SA198728

PATIENT

DRUGS (2)
  1. KEVZARA [Suspect]
     Active Substance: SARILUMAB
     Indication: RHEUMATOID ARTHRITIS
     Dosage: 200 MG, QOW
     Route: 058
     Dates: start: 201710
  2. H.P. ACTHAR [Concomitant]
     Active Substance: CORTICOTROPIN

REACTIONS (8)
  - Muscle strain [Unknown]
  - Throat irritation [Unknown]
  - Constipation [Unknown]
  - Arthritis [Unknown]
  - Dehydration [Unknown]
  - Joint swelling [Unknown]
  - Rhinorrhoea [Unknown]
  - Nasopharyngitis [Unknown]
